FAERS Safety Report 8352374-7 (Version None)
Quarter: 2012Q2

REPORT INFORMATION
  Report Type: 
  Country: None (occurrence: None)
  Receive Date: 20120511
  Receipt Date: 20120505
  Transmission Date: 20120825
  Serious: Yes (Other)
  Sender: FDA-Public Use
  Company Number: US-BAYER-2012-044242

PATIENT
  Age: 48 Year
  Sex: Female

DRUGS (3)
  1. BETASERON [Suspect]
     Dosage: 2 MIU, QOD
     Route: 058
     Dates: start: 20120427
  2. EXTRA STRENGTH TYLENOL [Concomitant]
  3. BETASERON [Suspect]
     Indication: MULTIPLE SCLEROSIS
     Dosage: UNK
     Dates: start: 20060422, end: 20070321

REACTIONS (4)
  - ABASIA [None]
  - FALL [None]
  - ASTHENIA [None]
  - PAIN IN EXTREMITY [None]
